FAERS Safety Report 19264670 (Version 1)
Quarter: 2021Q2

REPORT INFORMATION
  Report Type: Spontaneous
  Country: VE (occurrence: VE)
  Receive Date: 20210517
  Receipt Date: 20210517
  Transmission Date: 20210717
  Serious: Yes (Death, Other)
  Sender: FDA-Public Use
  Company Number: PHHY2019VE169230

PATIENT
  Age: 30 Year
  Sex: Female

DRUGS (2)
  1. GLIVEC [Suspect]
     Active Substance: IMATINIB MESYLATE
     Indication: CHRONIC MYELOID LEUKAEMIA
     Dosage: 600 MG (6 X 100 MG TABLETS)
     Route: 048
     Dates: start: 201903, end: 20191030
  2. GLIVEC [Suspect]
     Active Substance: IMATINIB MESYLATE
     Dosage: 400 MG, QD (4 OF 100 MG)
     Route: 048
     Dates: start: 20191030

REACTIONS (8)
  - Vaginal haemorrhage [Unknown]
  - Platelet count increased [Recovering/Resolving]
  - White blood cell count decreased [Recovering/Resolving]
  - Hepatitis [Unknown]
  - Blood count abnormal [Unknown]
  - Death [Fatal]
  - Haemoglobin decreased [Unknown]
  - Neutrophil count increased [Recovering/Resolving]

NARRATIVE: CASE EVENT DATE: 20191030
